FAERS Safety Report 7864357-1 (Version None)
Quarter: 2011Q4

REPORT INFORMATION
  Report Type: 
  Country: None (occurrence: None)
  Receive Date: 20111028
  Receipt Date: 20111020
  Transmission Date: 20120403
  Serious: Yes (Other)
  Sender: FDA-Public Use
  Company Number: GB-ASTELLAS-2011EU006709

PATIENT
  Sex: Male

DRUGS (2)
  1. TOLTERODINE TARTRATE [Suspect]
     Dosage: UNK
     Route: 065
  2. VESICARE [Suspect]
     Dosage: UNK
     Route: 065

REACTIONS (1)
  - ANGINA PECTORIS [None]
